FAERS Safety Report 4571963-9 (Version None)
Quarter: 2005Q1

REPORT INFORMATION
  Report Type: 
  Country: None (occurrence: None)
  Receive Date: 20050202
  Receipt Date: 20050118
  Transmission Date: 20050727
  Serious: Yes (Hospitalization)
  Sender: FDA-Public Use
  Company Number: 2004BI001034

PATIENT
  Sex: Male
  Weight: 127.0072 kg

DRUGS (24)
  1. AVONEX [Suspect]
     Indication: MULTIPLE SCLEROSIS
     Dosage: 30 UG; QW; IM
     Route: 030
     Dates: start: 20040601, end: 20040101
  2. AVONEX [Suspect]
     Indication: MULTIPLE SCLEROSIS
     Dosage: 30 UG; QW; IM
     Route: 030
     Dates: start: 20040501, end: 20040501
  3. AVONEX [Suspect]
     Indication: MULTIPLE SCLEROSIS
     Dosage: 30 UG; QW; IM
     Route: 030
     Dates: start: 20040101, end: 20041101
  4. TUSSIONEX [Concomitant]
  5. TESSALON [Concomitant]
  6. REGLAN [Concomitant]
  7. ULTRAM [Concomitant]
  8. NORCO [Concomitant]
  9. DIOVAN [Concomitant]
  10. NEURONTIN [Concomitant]
  11. PROTONIX [Concomitant]
  12. CARBATROL [Concomitant]
  13. COMBIVENT [Concomitant]
  14. K-DUR 10 [Concomitant]
  15. LASIX [Concomitant]
  16. COMPAZINE [Concomitant]
  17. PHENERGAN [Concomitant]
  18. HYCODAN [Concomitant]
  19. ANZEMET [Concomitant]
  20. ALLEGRA [Concomitant]
  21. EFFEXOR [Concomitant]
  22. MILK OF MAGNESIA [Concomitant]
  23. TYLENOL [Concomitant]
  24. ASPIRIN [Concomitant]

REACTIONS (15)
  - ALOPECIA [None]
  - CARDIOMEGALY [None]
  - DEPRESSED MOOD [None]
  - HIATUS HERNIA [None]
  - INFLUENZA LIKE ILLNESS [None]
  - MALIGNANT NEOPLASM PROGRESSION [None]
  - MYELOPATHY [None]
  - NAUSEA [None]
  - NEUROENDOCRINE CARCINOMA [None]
  - RASH [None]
  - RHINITIS ALLERGIC [None]
  - SMALL CELL LUNG CANCER STAGE UNSPECIFIED [None]
  - THERAPY NON-RESPONDER [None]
  - VISUAL ACUITY REDUCED [None]
  - VOMITING [None]
